FAERS Safety Report 4714601-4 (Version None)
Quarter: 2005Q3

REPORT INFORMATION
  Report Type: 
  Country: None (occurrence: None)
  Receive Date: 20050714
  Receipt Date: 20050714
  Transmission Date: 20060218
  Serious: Yes (Hospitalization)
  Sender: FDA-Public Use
  Company Number: None

PATIENT
  Age: 57 Year
  Sex: Male
  Weight: 97.977 kg

DRUGS (3)
  1. LAMOTRIGINE [Suspect]
     Indication: BIPOLAR II DISORDER
     Dosage: 200 MG QD ORAL
     Route: 048
     Dates: start: 20050502, end: 20050624
  2. TROPOL [Concomitant]
  3. HYZAAR [Concomitant]

REACTIONS (4)
  - AGGRESSION [None]
  - CARPAL TUNNEL SYNDROME [None]
  - MENTAL DISORDER [None]
  - SUICIDAL IDEATION [None]
